FAERS Safety Report 16118477 (Version 2)
Quarter: 2020Q1

REPORT INFORMATION
  Report Type: Spontaneous
  Country: FR (occurrence: FR)
  Receive Date: 20190326
  Receipt Date: 20200130
  Transmission Date: 20200409
  Serious: Yes (Hospitalization)
  Sender: FDA-Public Use
  Company Number: FR-ASTRAZENECA-2019SE44074

PATIENT
  Age: 19973 Day
  Sex: Female
  Weight: 69 kg

DRUGS (2)
  1. PACLITAXEL KABI [Suspect]
     Active Substance: PACLITAXEL
     Indication: SQUAMOUS CELL CARCINOMA OF LUNG
     Dosage: 6 MG/ML, SOLUTION TO DILUTE FOR INFUSION.
     Route: 065
     Dates: start: 20180801, end: 201812
  2. IMFINZI [Suspect]
     Active Substance: DURVALUMAB
     Indication: SQUAMOUS CELL CARCINOMA OF LUNG
     Dosage: SOLUTION, 50 MG/ML, INTRAVENOUS INFUSION
     Route: 042
     Dates: start: 20190114, end: 20190204

REACTIONS (2)
  - Organising pneumonia [Recovering/Resolving]
  - Dyspnoea [Recovering/Resolving]

NARRATIVE: CASE EVENT DATE: 20190208
